FAERS Safety Report 10716646 (Version 1)
Quarter: 2015Q1

REPORT INFORMATION
  Report Type: Spontaneous
  Country: US (occurrence: None)
  Receive Date: 20150115
  Receipt Date: 20150115
  Transmission Date: 20150721
  Serious: Yes (Other)
  Sender: FDA-Public Use
  Company Number: None

PATIENT
  Age: 34 Year
  Sex: Male
  Weight: 49.9 kg

DRUGS (1)
  1. VIVITROL [Suspect]
     Active Substance: NALTREXONE

REACTIONS (8)
  - Abnormal dreams [None]
  - Muscle tightness [None]
  - Hallucination [None]
  - Anger [None]
  - Trance [None]
  - Anxiety [None]
  - Restlessness [None]
  - Abnormal sleep-related event [None]

NARRATIVE: CASE EVENT DATE: 20141209
